FAERS Safety Report 17443215 (Version 1)
Quarter: 2020Q1

REPORT INFORMATION
  Report Type: Report from Study
  Country: US (occurrence: US)
  Receive Date: 20200221
  Receipt Date: 20200221
  Transmission Date: 20200409
  Serious: Yes (Death)
  Sender: FDA-Public Use
  Company Number: US-EMD SERONO-9146862

PATIENT
  Age: 52 Year
  Sex: Male

DRUGS (1)
  1. REBIF [Suspect]
     Active Substance: INTERFERON BETA-1A
     Indication: PRODUCT USED FOR UNKNOWN INDICATION
     Dosage: PREFILLED SYRINGE.
     Route: 058
     Dates: start: 20080130, end: 20191120

REACTIONS (2)
  - Generalised tonic-clonic seizure [Fatal]
  - Insurance issue [Unknown]

NARRATIVE: CASE EVENT DATE: 201911
